FAERS Safety Report 23193793 (Version 2)
Quarter: 2023Q4

REPORT INFORMATION
  Report Type: Other
  Country: US (occurrence: None)
  Receive Date: 20231116
  Receipt Date: 20231121
  Transmission Date: 20240110
  Serious: No
  Sender: FDA-Public Use
  Company Number: US-ROCHE-3459117

PATIENT
  Age: 25 Year
  Sex: Female

DRUGS (1)
  1. OCREVUS [Suspect]
     Active Substance: OCRELIZUMAB
     Indication: Multiple sclerosis
     Dosage: ONGOING: YES, 600 MG, EVERY 6 MONTHS DOT: 2022-04-25, 2022-04-11, 2023-04-27, 2022-10-25, 2022-04-11
     Route: 065
     Dates: start: 20220411

REACTIONS (3)
  - Staphylococcal infection [Not Recovered/Not Resolved]
  - Skin infection [Not Recovered/Not Resolved]
  - Pain [Not Recovered/Not Resolved]

NARRATIVE: CASE EVENT DATE: 20230101
